FAERS Safety Report 18437386 (Version 1)
Quarter: 2020Q4

REPORT INFORMATION
  Report Type: Spontaneous
  Country: JP (occurrence: JP)
  Receive Date: 20201028
  Receipt Date: 20201028
  Transmission Date: 20210114
  Serious: Yes (Hospitalization, Other)
  Sender: FDA-Public Use
  Company Number: JP-JNJFOC-20201034383

PATIENT
  Age: 74 Year
  Sex: Male
  Weight: 77.5 kg

DRUGS (61)
  1. XARELTO [Suspect]
     Active Substance: RIVAROXABAN
     Indication: PULMONARY EMBOLISM
     Dosage: 10 MG, QD
     Route: 048
     Dates: start: 20180427
  2. DARATUMUMAB [Suspect]
     Active Substance: DARATUMUMAB
     Dosage: 16MG/KG,1 TIME PER 1 DAY
     Route: 041
     Dates: start: 20180205, end: 20180205
  3. BORTEZOMIB. [Suspect]
     Active Substance: BORTEZOMIB
     Dosage: 1.3MG/M2,1 TIME PER 1 DAY
     Route: 058
     Dates: start: 20180205, end: 20180205
  4. BORTEZOMIB. [Suspect]
     Active Substance: BORTEZOMIB
     Dosage: 1.3MG/M2,1 TIME PER 1 DAY
     Route: 058
     Dates: start: 20180409, end: 20180409
  5. BORTEZOMIB. [Suspect]
     Active Substance: BORTEZOMIB
     Dosage: 1.3MG/M2,1 TIME PER 1 DAY
     Route: 058
     Dates: start: 20180412, end: 20180412
  6. BORTEZOMIB. [Suspect]
     Active Substance: BORTEZOMIB
     Dosage: 1.3MG/M2,1 TIME PER 1 DAY
     Route: 058
     Dates: start: 20180524, end: 20180524
  7. BORTEZOMIB. [Suspect]
     Active Substance: BORTEZOMIB
     Dosage: 1.3MG/M2,1 TIME PER 1 DAY
     Route: 058
     Dates: start: 20180604, end: 20180604
  8. DEXAMETHASONE. [Suspect]
     Active Substance: DEXAMETHASONE
     Indication: PLASMA CELL MYELOMA
     Dosage: 20 MG, QD
     Route: 065
     Dates: start: 20171130, end: 20171201
  9. DEXAMETHASONE. [Suspect]
     Active Substance: DEXAMETHASONE
     Dosage: 20 MG, QD
     Dates: start: 20180402, end: 20180403
  10. DEXAMETHASONE. [Suspect]
     Active Substance: DEXAMETHASONE
     Dosage: 20 MG, QD
     Dates: start: 20180625, end: 20180626
  11. XARELTO [Suspect]
     Active Substance: RIVAROXABAN
     Indication: DEEP VEIN THROMBOSIS
     Dosage: 10 MG, QD
     Route: 048
     Dates: start: 20170201, end: 20180414
  12. DARATUMUMAB [Suspect]
     Active Substance: DARATUMUMAB
     Indication: PLASMA CELL MYELOMA
     Dosage: 16MG/KG,1 TIME PER 1 DAY
     Route: 041
     Dates: start: 20171130, end: 20171130
  13. BORTEZOMIB. [Suspect]
     Active Substance: BORTEZOMIB
     Dosage: 1.3MG/M2,1 TIME PER 1 DAY
     Route: 058
     Dates: start: 20180402, end: 20180402
  14. DEXAMETHASONE. [Suspect]
     Active Substance: DEXAMETHASONE
     Dosage: 20 MG, QD
     Dates: start: 20171210, end: 20171211
  15. DEXAMETHASONE. [Suspect]
     Active Substance: DEXAMETHASONE
     Dosage: 20 MG, QD
     Dates: start: 20180201, end: 20180202
  16. DEXAMETHASONE. [Suspect]
     Active Substance: DEXAMETHASONE
     Dosage: 20 MG, QD
     Dates: start: 20180607, end: 20180608
  17. DARATUMUMAB [Suspect]
     Active Substance: DARATUMUMAB
     Dosage: 16MG/KG,1 TIME PER 1 DAY
     Route: 041
     Dates: start: 20180104, end: 20180104
  18. DARATUMUMAB [Suspect]
     Active Substance: DARATUMUMAB
     Dosage: 16MG/KG,1 TIME PER 1 DAY
     Route: 041
     Dates: start: 20180111, end: 20180111
  19. DARATUMUMAB [Suspect]
     Active Substance: DARATUMUMAB
     Dosage: 16MG/KG,1 TIME PER 1 DAY
     Route: 041
     Dates: start: 20180402, end: 20180402
  20. BORTEZOMIB. [Suspect]
     Active Substance: BORTEZOMIB
     Indication: PLASMA CELL MYELOMA
     Dosage: 1.3MG/M2,1 TIME PER 1 DAY
     Route: 058
     Dates: start: 20171130, end: 20171130
  21. DEXAMETHASONE. [Suspect]
     Active Substance: DEXAMETHASONE
     Dosage: 20 MG, QD
     Dates: start: 20180214, end: 20180214
  22. DARATUMUMAB [Suspect]
     Active Substance: DARATUMUMAB
     Dosage: 16MG/KG,1 TIME PER 1 DAY
     Route: 041
     Dates: start: 20171207, end: 20171207
  23. DARATUMUMAB [Suspect]
     Active Substance: DARATUMUMAB
     Dosage: 16MG/KG,1 TIME PER 1 DAY
     Route: 041
     Dates: start: 20180514, end: 20180514
  24. BORTEZOMIB. [Suspect]
     Active Substance: BORTEZOMIB
     Dosage: 1.3MG/M2,1 TIME PER 1 DAY
     Route: 058
     Dates: start: 20180107, end: 20180107
  25. BORTEZOMIB. [Suspect]
     Active Substance: BORTEZOMIB
     Dosage: 1.3MG/M2,1 TIME PER 1 DAY
     Route: 058
     Dates: start: 20180517, end: 20180517
  26. BORTEZOMIB. [Suspect]
     Active Substance: BORTEZOMIB
     Dosage: 1.3MG/M2,1 TIME PER 1 DAY
     Route: 058
     Dates: start: 20180611, end: 20180611
  27. BORTEZOMIB. [Suspect]
     Active Substance: BORTEZOMIB
     Dosage: 1.3MG/M2,1 TIME PER 1 DAY
     Route: 058
     Dates: start: 20180614, end: 20180614
  28. DEXAMETHASONE. [Suspect]
     Active Substance: DEXAMETHASONE
     Dosage: 20 MG, QD
     Dates: start: 20171203, end: 20171204
  29. DEXAMETHASONE. [Suspect]
     Active Substance: DEXAMETHASONE
     Dosage: 20 MG, QD
     Dates: start: 20180214, end: 20180214
  30. DARATUMUMAB [Suspect]
     Active Substance: DARATUMUMAB
     Dosage: 16MG/KG,1 TIME PER 1 DAY
     Route: 041
     Dates: start: 20180604, end: 20180604
  31. DARATUMUMAB [Suspect]
     Active Substance: DARATUMUMAB
     Dosage: 16MG/KG,1 TIME PER 1 DAY
     Route: 041
     Dates: start: 20180625, end: 20180625
  32. BORTEZOMIB. [Suspect]
     Active Substance: BORTEZOMIB
     Dosage: 1.3MG/M2,1 TIME PER 1 DAY
     Route: 058
     Dates: start: 20180104, end: 20180104
  33. BORTEZOMIB. [Suspect]
     Active Substance: BORTEZOMIB
     Dosage: 1.3MG/M2,1 TIME PER 1 DAY
     Route: 058
     Dates: start: 20180405, end: 20180405
  34. DEXAMETHASONE. [Suspect]
     Active Substance: DEXAMETHASONE
     Dosage: 20 MG, QD
     Dates: start: 20180111, end: 20180112
  35. DEXAMETHASONE. [Suspect]
     Active Substance: DEXAMETHASONE
     Dosage: 20 MG, QD
     Dates: start: 20180514, end: 20180515
  36. DARATUMUMAB [Suspect]
     Active Substance: DARATUMUMAB
     Dosage: 16MG/KG,1 TIME PER 1 DAY
     Route: 041
     Dates: start: 20180212, end: 20180212
  37. BORTEZOMIB. [Suspect]
     Active Substance: BORTEZOMIB
     Dosage: 1.3MG/M2,1 TIME PER 1 DAY
     Route: 058
     Dates: start: 20171201, end: 20171201
  38. BORTEZOMIB. [Suspect]
     Active Substance: BORTEZOMIB
     Dosage: 1.3MG/M2,1 TIME PER 1 DAY
     Route: 058
     Dates: start: 20180111, end: 20180111
  39. BORTEZOMIB. [Suspect]
     Active Substance: BORTEZOMIB
     Dosage: 1.3MG/M2,1 TIME PER 1 DAY
     Route: 058
     Dates: start: 20180514, end: 20180514
  40. DEXAMETHASONE. [Suspect]
     Active Substance: DEXAMETHASONE
     Dosage: 20 MG, QD
     Dates: start: 20180104, end: 20180105
  41. DEXAMETHASONE. [Suspect]
     Active Substance: DEXAMETHASONE
     Dosage: 20 MG, QD
     Dates: start: 20180412, end: 20180413
  42. BORTEZOMIB. [Suspect]
     Active Substance: BORTEZOMIB
     Dosage: 1.3MG/M2,1 TIME PER 1 DAY
     Route: 058
     Dates: start: 20180201, end: 20180201
  43. BORTEZOMIB. [Suspect]
     Active Substance: BORTEZOMIB
     Dosage: 1.3MG/M2,1 TIME PER 1 DAY
     Route: 058
     Dates: start: 20180628, end: 20180628
  44. DEXAMETHASONE. [Suspect]
     Active Substance: DEXAMETHASONE
     Dosage: 20 MG, QD
     Dates: start: 20180107, end: 20180108
  45. DEXAMETHASONE. [Suspect]
     Active Substance: DEXAMETHASONE
     Dosage: 20 MG, QD
     Dates: start: 20180517, end: 20180518
  46. DEXAMETHASONE. [Suspect]
     Active Substance: DEXAMETHASONE
     Dosage: 20 MG, QD
     Dates: start: 20180524, end: 20180525
  47. DEXAMETHASONE. [Suspect]
     Active Substance: DEXAMETHASONE
     Dosage: 20 MG, QD
     Dates: start: 20180604, end: 20180605
  48. DEXAMETHASONE. [Suspect]
     Active Substance: DEXAMETHASONE
     Dosage: 20 MG, QD
     Dates: start: 20180611, end: 20180612
  49. DEXAMETHASONE. [Suspect]
     Active Substance: DEXAMETHASONE
     Dosage: 20 MG, QD
     Dates: start: 20180614, end: 20180615
  50. DEXAMETHASONE. [Suspect]
     Active Substance: DEXAMETHASONE
     Dosage: 20 MG, QD
     Dates: start: 20180628, end: 20180629
  51. DARATUMUMAB [Suspect]
     Active Substance: DARATUMUMAB
     Dosage: 16MG/KG,1 TIME PER 1 DAY
     Route: 041
     Dates: start: 20180129, end: 20180129
  52. BORTEZOMIB. [Suspect]
     Active Substance: BORTEZOMIB
     Dosage: 1.3MG/M2,1 TIME PER 1 DAY
     Route: 058
     Dates: start: 20171207, end: 20171207
  53. BORTEZOMIB. [Suspect]
     Active Substance: BORTEZOMIB
     Dosage: 1.3MG/M2,1 TIME PER 1 DAY
     Route: 058
     Dates: start: 20171210, end: 20171210
  54. BORTEZOMIB. [Suspect]
     Active Substance: BORTEZOMIB
     Dosage: 1.3MG/M2,1 TIME PER 1 DAY
     Route: 058
     Dates: start: 20180129, end: 20180129
  55. BORTEZOMIB. [Suspect]
     Active Substance: BORTEZOMIB
     Dosage: 1.3MG/M2,1 TIME PER 1 DAY
     Route: 058
     Dates: start: 20180607, end: 20180607
  56. BORTEZOMIB. [Suspect]
     Active Substance: BORTEZOMIB
     Dosage: 1.3MG/M2,1 TIME PER 1 DAY
     Route: 058
     Dates: start: 20180625, end: 20180625
  57. DEXAMETHASONE. [Suspect]
     Active Substance: DEXAMETHASONE
     Dosage: 20 MG, QD
     Dates: start: 20171207, end: 20171208
  58. DEXAMETHASONE. [Suspect]
     Active Substance: DEXAMETHASONE
     Dosage: 20 MG, QD
     Dates: start: 20180118, end: 20180118
  59. DEXAMETHASONE. [Suspect]
     Active Substance: DEXAMETHASONE
     Dosage: 20 MG, QD
     Dates: start: 20180129, end: 20180130
  60. DEXAMETHASONE. [Suspect]
     Active Substance: DEXAMETHASONE
     Dosage: 20 MG, QD
     Dates: start: 20180405, end: 20180406
  61. DEXAMETHASONE. [Suspect]
     Active Substance: DEXAMETHASONE
     Dosage: 20 MG, QD
     Dates: start: 20180409, end: 20180410

REACTIONS (8)
  - Enterocolitis [Recovering/Resolving]
  - Spinal compression fracture [Recovering/Resolving]
  - Thrombocytopenia [Recovering/Resolving]
  - Bronchopulmonary aspergillosis [Recovering/Resolving]
  - Haematuria [Recovered/Resolved]
  - Cystitis [Recovered/Resolved]
  - Pneumonia aspiration [Recovering/Resolving]
  - Cytomegalovirus test positive [Recovering/Resolving]

NARRATIVE: CASE EVENT DATE: 20171213
